FAERS Safety Report 6645987-1 (Version None)
Quarter: 2010Q1

REPORT INFORMATION
  Report Type: 
  Country: None (occurrence: None)
  Receive Date: 20100323
  Receipt Date: 20100316
  Transmission Date: 20100710
  Serious: Yes (Hospitalization)
  Sender: FDA-Public Use
  Company Number: US-ASTRAZENECA-2010SE11549

PATIENT
  Sex: Male
  Weight: 92.5 kg

DRUGS (3)
  1. CRESTOR [Suspect]
     Indication: BLOOD CHOLESTEROL INCREASED
     Route: 048
     Dates: start: 20080101, end: 20100214
  2. ATACAND [Concomitant]
     Route: 048
  3. ALDACTONE [Concomitant]

REACTIONS (4)
  - ELECTROLYTE IMBALANCE [None]
  - FLANK PAIN [None]
  - LOW DENSITY LIPOPROTEIN DECREASED [None]
  - MYALGIA [None]
